FAERS Safety Report 24389947 (Version 2)
Quarter: 2024Q4

REPORT INFORMATION
  Report Type: Spontaneous
  Country: US (occurrence: US)
  Receive Date: 20241003
  Receipt Date: 20241223
  Transmission Date: 20250115
  Serious: No
  Sender: SANOFI AVENTIS
  Company Number: US-SA-2024SA274253

PATIENT
  Age: 2 Year
  Sex: Female

DRUGS (3)
  1. DUPIXENT [Suspect]
     Active Substance: DUPILUMAB
     Indication: Eczema
     Dosage: UNK
     Dates: start: 2023, end: 2023
  2. DUPIXENT [Suspect]
     Active Substance: DUPILUMAB
     Dosage: 600 MG, 1X
     Route: 058
     Dates: start: 20240729, end: 20240729
  3. DUPIXENT [Suspect]
     Active Substance: DUPILUMAB
     Dosage: 300 MG, Q4W
     Route: 058
     Dates: start: 20240905, end: 202411

REACTIONS (8)
  - Food allergy [Unknown]
  - Urticaria [Unknown]
  - Pruritus [Unknown]
  - Skin discolouration [Unknown]
  - Gastroenteritis viral [Unknown]
  - Streptococcal infection [Unknown]
  - Poor quality sleep [Unknown]
  - Eczema [Unknown]

NARRATIVE: CASE EVENT DATE: 20230101
